FAERS Safety Report 23596090 (Version 1)
Quarter: 2024Q1

REPORT INFORMATION
  Report Type: Spontaneous
  Country: FR (occurrence: FR)
  Receive Date: 20240305
  Receipt Date: 20240305
  Transmission Date: 20240410
  Serious: Yes (Life-Threatening, Other)
  Sender: FDA-Public Use
  Company Number: None

PATIENT
  Age: 19 Year
  Sex: Male

DRUGS (8)
  1. CYCLOPHOSPHAMIDE [Suspect]
     Active Substance: CYCLOPHOSPHAMIDE
     Indication: Bone marrow conditioning regimen
  2. MERCAPTOPURINE [Suspect]
     Active Substance: MERCAPTOPURINE
     Indication: Acute biphenotypic leukaemia
  3. METHOTREXATE [Suspect]
     Active Substance: METHOTREXATE
     Indication: Prophylaxis against graft versus host disease
     Dosage: HIGH-DOSE?CUMULATIVE DOSE: 16 G/M2
  4. METHOTREXATE [Suspect]
     Active Substance: METHOTREXATE
     Indication: Acute biphenotypic leukaemia
     Dosage: HIGH-DOSE?CUMULATIVE DOSE: 16 G/M2
  5. PEGASPARGASE [Suspect]
     Active Substance: PEGASPARGASE
     Indication: Acute biphenotypic leukaemia
     Dosage: CUMULATIVE DOSE: 4000 IU/M2
  6. VINCRISTINE [Suspect]
     Active Substance: VINCRISTINE
     Indication: Acute biphenotypic leukaemia
  7. DARATUMUMAB [Suspect]
     Active Substance: DARATUMUMAB
     Indication: Acute biphenotypic leukaemia
     Route: 058
  8. URSODIOL [Concomitant]
     Active Substance: URSODIOL
     Indication: Product used for unknown indication

REACTIONS (6)
  - Venoocclusive disease [Recovered/Resolved]
  - Hepatic cytolysis [Recovered/Resolved]
  - Cholestasis [Recovered/Resolved]
  - Thrombocytopenia [Recovered/Resolved]
  - Liver function test abnormal [Unknown]
  - Off label use [Unknown]
